FAERS Safety Report 4711620-9 (Version None)
Quarter: 2005Q3

REPORT INFORMATION
  Report Type: 
  Country: None (occurrence: None)
  Receive Date: 20050708
  Receipt Date: 20050708
  Transmission Date: 20060218
  Serious: Yes (Hospitalization)
  Sender: FDA-Public Use
  Company Number: None

PATIENT
  Sex: Male
  Weight: 76.3 kg

DRUGS (1)
  1. CELEBREX [Suspect]
     Indication: BACK PAIN
     Dosage: ORAL
     Route: 048

REACTIONS (6)
  - CHEST DISCOMFORT [None]
  - CHOKING [None]
  - DYSPNOEA [None]
  - FLUSHING [None]
  - OEDEMA PERIPHERAL [None]
  - PRURITUS [None]
